FAERS Safety Report 10403101 (Version 2)
Quarter: 2014Q3

REPORT INFORMATION
  Report Type: Spontaneous
  Country: US (occurrence: US)
  Receive Date: 20140822
  Receipt Date: 20140822
  Transmission Date: 20150326
  Serious: Yes (Hospitalization, Disabling)
  Sender: FDA-Public Use
  Company Number: US-GLAXOSMITHKLINE-A0745836A

PATIENT
  Sex: Female
  Weight: 106.8 kg

DRUGS (8)
  1. GLUCOPHAGE [Concomitant]
     Active Substance: METFORMIN HYDROCHLORIDE
  2. METFORMIN [Concomitant]
     Active Substance: METFORMIN HYDROCHLORIDE
  3. PREDNISOLONE. [Concomitant]
     Active Substance: PREDNISOLONE
  4. GLUCOTROL XL [Concomitant]
     Active Substance: GLIPIZIDE
  5. ZOCOR [Concomitant]
     Active Substance: SIMVASTATIN
  6. JANUVIA [Concomitant]
     Active Substance: SITAGLIPTIN PHOSPHATE
  7. CELEBREX [Concomitant]
     Active Substance: CELECOXIB
  8. AVANDIA [Suspect]
     Active Substance: ROSIGLITAZONE MALEATE
     Indication: TYPE 2 DIABETES MELLITUS
     Dosage: 4MG TWICE PER DAY
     Route: 048
     Dates: start: 200205, end: 200710

REACTIONS (9)
  - Convulsion [Unknown]
  - Syncope [Unknown]
  - Cerebral infarction [Unknown]
  - Hemiparesis [Unknown]
  - Pulmonary oedema [Unknown]
  - Cerebrovascular accident [Unknown]
  - Cerebral artery occlusion [Unknown]
  - Myocardial infarction [Unknown]
  - Circulatory collapse [Unknown]
